FAERS Safety Report 7819404 (Version 3)
Quarter: 2012Q4

REPORT INFORMATION
  Report Type: 
  Country: US (occurrence: US)
  Receive Date: 20110218
  Receipt Date: 20120919
  Transmission Date: 20130627
  Serious: Yes (Other)
  Sender: FDA-Public Use
  Company Number: US-PFIZER INC-2011034016

PATIENT
  Age: 46 Year
  Sex: Female
  Weight: 78.46 kg

DRUGS (24)
  1. LYRICA [Suspect]
     Indication: FIBROMYALGIA
     Dosage: 75 mg, 2x/day
     Dates: start: 201012, end: 201012
  2. LYRICA [Suspect]
     Dosage: 75 mg, 3x/day
     Dates: start: 201012
  3. LYRICA [Suspect]
     Dosage: 200 mg, 3x/day
     Route: 048
  4. ARICEPT [Concomitant]
     Indication: DEMENTIA
     Dosage: 10mg daily
  5. ULTRAM ER [Concomitant]
     Indication: PAIN
     Dosage: 100 mg, 3x/day
  6. METOPROLOL [Concomitant]
     Indication: HYPERTENSION
     Dosage: 50 mg, 2x/day
  7. INDOMETHACIN [Concomitant]
     Indication: ANKYLOSING SPONDYLITIS
     Dosage: 50 mg, 3x/day
  8. INDOMETHACIN [Concomitant]
     Dosage: 50 mg, 2x/day
  9. BABY ASPIRIN [Concomitant]
     Indication: CARDIAC DISORDER
     Dosage: 81mg daily
  10. LASIX [Concomitant]
     Indication: OEDEMA DUE TO CARDIAC DISEASE
     Dosage: 40mg daily
  11. SIMVASTATIN [Concomitant]
     Dosage: 20 mg, QHS
  12. OMEPRAZOLE [Concomitant]
     Dosage: 20 mg daily PRN
  13. FOLIC ACID [Concomitant]
     Dosage: 1 mg, daily
  14. ALBUTEROL [Concomitant]
     Dosage: 2 puffs of 4-6 prn
  15. TRIAMCINOLONE [Concomitant]
     Dosage: 0.1 mg, 2x/day
  16. ENBREL [Concomitant]
     Dosage: UNK
  17. METHOTREXATE [Concomitant]
     Dosage: 15 mg, weekly
  18. LOSARTAN [Concomitant]
     Dosage: 50 mg, daily
  19. MIRALAX [Concomitant]
     Dosage: 17 g, daily
  20. VIT D [Concomitant]
     Dosage: 2000 daily
  21. CYCLOBENZAPRINE [Concomitant]
     Dosage: 10 mg, 2x/day
  22. CLOBETASOL [Concomitant]
     Dosage: 0.05 %, QD-BID
  23. KEFLEX [Concomitant]
     Dosage: 500 mg, 3x/day
     Route: 048
  24. PREDNISONE [Concomitant]
     Dosage: 10 mg, as directed

REACTIONS (2)
  - Weight increased [Not Recovered/Not Resolved]
  - Weight decreased [Unknown]
